FAERS Safety Report 13298109 (Version 7)
Quarter: 2017Q4

REPORT INFORMATION
  Report Type: Spontaneous
  Country: JP (occurrence: JP)
  Receive Date: 20170306
  Receipt Date: 20171213
  Transmission Date: 20180320
  Serious: Yes (Hospitalization)
  Sender: FDA-Public Use
  Company Number: JP-SA-2017SA031017

PATIENT
  Age: 2 Month
  Sex: Male
  Weight: 2.96 kg

DRUGS (5)
  1. URSO [Concomitant]
     Active Substance: URSODIOL
     Indication: CHOLESTASIS
     Route: 048
     Dates: start: 20170104, end: 20170228
  2. INCREMIN [Concomitant]
     Active Substance: FERRIC PYROPHOSPHATE
     Indication: ANAEMIA
     Route: 048
     Dates: start: 20161228, end: 20170314
  3. PHENOBARBITAL. [Suspect]
     Active Substance: PHENOBARBITAL
     Indication: SEDATION
     Dosage: FORM : POWDER
     Route: 048
     Dates: start: 20170203, end: 20170314
  4. CEREZYME [Suspect]
     Active Substance: IMIGLUCERASE
     Indication: GAUCHER^S DISEASE TYPE II
     Dosage: RECEIVED 59. 47 U/KG ON 21-FEB-2017 DOSE:60 UNIT(S)/KILOGRAM BODYWEIGHT
     Route: 041
     Dates: start: 20170124
  5. PHENOBARBITAL. [Suspect]
     Active Substance: PHENOBARBITAL
     Indication: CONVULSION PROPHYLAXIS
     Dosage: FORM : POWDER
     Route: 048
     Dates: start: 20170203, end: 20170314

REACTIONS (3)
  - Pyrexia [Recovered/Resolved]
  - Gamma-glutamyltransferase increased [Not Recovered/Not Resolved]
  - Wheezing [Recovering/Resolving]

NARRATIVE: CASE EVENT DATE: 20170221
